FAERS Safety Report 21450763 (Version 2)
Quarter: 2022Q4

REPORT INFORMATION
  Report Type: Spontaneous
  Country: FR (occurrence: FR)
  Receive Date: 20221013
  Receipt Date: 20221026
  Transmission Date: 20230113
  Serious: Yes (Hospitalization, Other)
  Sender: FDA-Public Use
  Company Number: FR-MLMSERVICE-20221004-3833347-1

PATIENT
  Age: 50 Year
  Sex: Female

DRUGS (6)
  1. THYMOGLOBULIN [Suspect]
     Active Substance: LAPINE T-LYMPHOCYTE IMMUNE GLOBULIN
     Indication: Immunosuppressant drug therapy
     Dosage: UNK
     Dates: start: 2014, end: 2014
  2. PREDNISOLONE [Suspect]
     Active Substance: PREDNISOLONE
     Indication: Immunosuppressant drug therapy
     Dosage: UNK
     Dates: start: 2014
  3. RITUXIMAB [Suspect]
     Active Substance: RITUXIMAB
     Indication: Immunosuppressant drug therapy
     Dosage: UNK
     Dates: start: 2014, end: 2014
  4. AZATHIOPRINE [Suspect]
     Active Substance: AZATHIOPRINE
     Indication: Immunosuppressant drug therapy
     Dosage: UNK
     Dates: start: 201412
  5. TACROLIMUS [Suspect]
     Active Substance: TACROLIMUS
     Indication: Immunosuppressant drug therapy
     Dosage: UNK
     Dates: start: 2014
  6. MYCOPHENOLATE MOFETIL [Suspect]
     Active Substance: MYCOPHENOLATE MOFETIL
     Indication: Immunosuppressant drug therapy
     Dosage: UNK
     Dates: start: 2014

REACTIONS (16)
  - Hepatitis [Recovered/Resolved]
  - Ascites [Recovered/Resolved]
  - Cholestasis [Recovered/Resolved]
  - Arthritis reactive [Recovering/Resolving]
  - Enterocolitis [Recovering/Resolving]
  - Diarrhoea [Recovering/Resolving]
  - Abdominal pain [Recovering/Resolving]
  - Erythema nodosum [Recovering/Resolving]
  - Panniculitis [Recovering/Resolving]
  - Splenic abscess [Recovering/Resolving]
  - Splenic lesion [Recovering/Resolving]
  - Campylobacter infection [Recovering/Resolving]
  - Bacteraemia [Recovering/Resolving]
  - Lymphopenia [Recovering/Resolving]
  - Weight decreased [Recovering/Resolving]
  - Cell death [Recovering/Resolving]

NARRATIVE: CASE EVENT DATE: 20140101
